FAERS Safety Report 9179435 (Version 1)
Quarter: 2013Q1

REPORT INFORMATION
  Report Type: Spontaneous
  Country: US (occurrence: US)
  Receive Date: 20130321
  Receipt Date: 20130321
  Transmission Date: 20140127
  Serious: No
  Sender: FDA-Public Use
  Company Number: US-009507513-1303USA009631

PATIENT
  Sex: 0

DRUGS (2)
  1. LOSARTAN POTASSIUM TABLETS [Suspect]
  2. AMLODIPINE [Concomitant]

REACTIONS (4)
  - Fatigue [Unknown]
  - Lethargy [Unknown]
  - Asthenia [Unknown]
  - Feeling abnormal [Unknown]
